FAERS Safety Report 7176389-X (Version None)
Quarter: 2010Q4

REPORT INFORMATION
  Report Type: 
  Country: None (occurrence: None)
  Receive Date: 20101220
  Receipt Date: 20101213
  Transmission Date: 20110411
  Serious: Yes (Other)
  Sender: FDA-Public Use
  Company Number: CA-US-EMD SERONO, INC.-230212J10CAN

PATIENT
  Sex: Female

DRUGS (10)
  1. REBIF [Suspect]
     Indication: RELAPSING-REMITTING MULTIPLE SCLEROSIS
     Dates: start: 20090826, end: 20100709
  2. GABAPENTIN [Concomitant]
  3. RABEPRAZOLE SODIUM [Concomitant]
  4. CLONAZEPAM [Concomitant]
  5. AZETROL [Concomitant]
  6. DICLOSENAC [DICLOFENAC] [Concomitant]
  7. STATEX [Concomitant]
  8. ADVIL [Concomitant]
  9. CALTRATE-D [Concomitant]
  10. CENTRUM MULTI-VITAMIN [Concomitant]

REACTIONS (13)
  - ARTHRALGIA [None]
  - BALANCE DISORDER [None]
  - BLINDNESS TRANSIENT [None]
  - COLOUR BLINDNESS [None]
  - CONSTIPATION [None]
  - DIARRHOEA [None]
  - HYPOAESTHESIA [None]
  - INFLUENZA LIKE ILLNESS [None]
  - OPTIC NEURITIS [None]
  - PAIN IN EXTREMITY [None]
  - PHOTOPSIA [None]
  - VISION BLURRED [None]
  - VITREOUS FLOATERS [None]
